FAERS Safety Report 6267132-7 (Version None)
Quarter: 2009Q3

REPORT INFORMATION
  Report Type: 
  Country: None (occurrence: None)
  Receive Date: 20090714
  Receipt Date: 20090702
  Transmission Date: 20100115
  Serious: Yes (Other)
  Sender: FDA-Public Use
  Company Number: ES-PFIZER INC-2009212494

PATIENT
  Age: 37 Year

DRUGS (1)
  1. EXUBERA [Suspect]
     Indication: DIABETES MELLITUS
     Dosage: 1 MG, UNK
     Route: 055
     Dates: start: 20070808

REACTIONS (1)
  - DRUG EFFECT INCREASED [None]
